FAERS Safety Report 11673321 (Version 1)
Quarter: 2015Q4

REPORT INFORMATION
  Report Type: Spontaneous
  Country: US (occurrence: US)
  Receive Date: 20151027
  Receipt Date: 20151027
  Transmission Date: 20160304
  Serious: No
  Sender: FDA-Public Use
  Company Number: US-ELI_LILLY_AND_COMPANY-US201007003656

PATIENT
  Sex: Female

DRUGS (1)
  1. FORTEO [Suspect]
     Active Substance: TERIPARATIDE
     Indication: OSTEOPOROSIS
     Dosage: 20 UG, UNK
     Dates: start: 20100609, end: 20100707

REACTIONS (14)
  - Oedema peripheral [Recovering/Resolving]
  - Swelling face [Recovering/Resolving]
  - Muscle spasms [Recovering/Resolving]
  - Abdominal pain [Recovered/Resolved]
  - Screaming [Recovering/Resolving]
  - Headache [Recovering/Resolving]
  - Nausea [Recovering/Resolving]
  - Bladder disorder [Recovered/Resolved]
  - Urinary incontinence [Recovering/Resolving]
  - Renal disorder [Recovered/Resolved]
  - Gastric disorder [Recovered/Resolved]
  - Swelling [Recovering/Resolving]
  - Joint swelling [Recovering/Resolving]
  - Sleep disorder due to a general medical condition [Recovering/Resolving]
